FAERS Safety Report 5411944-6 (Version None)
Quarter: 2007Q3

REPORT INFORMATION
  Report Type: 
  Country: None (occurrence: None)
  Receive Date: 20070813
  Receipt Date: 20070803
  Transmission Date: 20080115
  Serious: Yes (Hospitalization)
  Sender: FDA-Public Use
  Company Number: US-ELI_LILLY_AND_COMPANY-US_0406103850

PATIENT
  Age: 33 Year
  Sex: Female

DRUGS (3)
  1. GEMZAR [Suspect]
     Indication: HODGKIN'S DISEASE
     Dosage: 11 UNK, OTHER
     Route: 042
  2. VINORELBINE [Concomitant]
     Indication: HODGKIN'S DISEASE
     Dosage: UNK, UNKNOWN
  3. DOXORUBICIN [Concomitant]
     Indication: HODGKIN'S DISEASE
     Dosage: UNK, UNKNOWN

REACTIONS (1)
  - THROMBOTIC MICROANGIOPATHY [None]
